FAERS Safety Report 10044694 (Version 2)
Quarter: 2014Q2

REPORT INFORMATION
  Report Type: Spontaneous
  Country: FR (occurrence: FR)
  Receive Date: 20140328
  Receipt Date: 20140414
  Transmission Date: 20141212
  Serious: Yes (Hospitalization)
  Sender: FDA-Public Use
  Company Number: PHHY2014FR037619

PATIENT
  Age: 66 Year
  Sex: Female

DRUGS (3)
  1. ZOMETA [Suspect]
     Indication: OSTEOLYSIS
     Dosage: 4 MG, 1 DF ONCE MONTLY
     Route: 042
     Dates: start: 20110422
  2. LYTOS [Suspect]
     Indication: OSTEOLYSIS
     Dosage: 2 DF DAILY
     Route: 048
     Dates: start: 20100319, end: 20110421
  3. CLASTOBAN [Concomitant]
     Dosage: UNK UKN, UNK
     Dates: start: 20090522

REACTIONS (1)
  - Osteonecrosis [Not Recovered/Not Resolved]
